FAERS Safety Report 8387817-6 (Version None)
Quarter: 2012Q2

REPORT INFORMATION
  Report Type: 
  Country: None (occurrence: None)
  Receive Date: 20120525
  Receipt Date: 20120411
  Transmission Date: 20120825
  Serious: Yes (Other)
  Sender: FDA-Public Use
  Company Number: US-BRISTOL-MYERS SQUIBB COMPANY-16514804

PATIENT
  Age: 48 Year
  Sex: Male

DRUGS (2)
  1. LANTUS [Concomitant]
  2. KOMBIGLYZE XR [Suspect]
     Dosage: KOMBIGLYZE XR 2.5/1000 MG
     Dates: start: 20120229

REACTIONS (1)
  - RASH GENERALISED [None]
